FAERS Safety Report 5204211-7 (Version None)
Quarter: 2007Q1

REPORT INFORMATION
  Report Type: 
  Country: None (occurrence: None)
  Receive Date: 20070110
  Receipt Date: 20060612
  Transmission Date: 20070707
  Serious: Yes (Disabling)
  Sender: FDA-Public Use
  Company Number: US-BRISTOL-MYERS SQUIBB COMPANY-13241450

PATIENT
  Age: 17 Year
  Weight: 111 kg

DRUGS (4)
  1. ABILIFY [Suspect]
     Indication: AUTISM SPECTRUM DISORDER
     Dosage: REDUCED ON 12-OCT-2005
     Route: 048
     Dates: start: 20050729
  2. ABILIFY [Suspect]
     Indication: TOURETTE'S DISORDER
     Dosage: REDUCED ON 12-OCT-2005
     Route: 048
     Dates: start: 20050729
  3. CONCERTA [Concomitant]
     Dates: start: 20050729, end: 20051012
  4. ADDERALL 10 [Concomitant]
     Route: 048
     Dates: start: 20051012

REACTIONS (1)
  - WEIGHT INCREASED [None]
